FAERS Safety Report 23285562 (Version 1)
Quarter: 2023Q4

REPORT INFORMATION
  Report Type: Report from Study
  Country: US (occurrence: US)
  Receive Date: 20231212
  Receipt Date: 20231212
  Transmission Date: 20240109
  Serious: Yes (Other)
  Sender: FDA-Public Use
  Company Number: US-ABBVIE-5281364

PATIENT
  Sex: Female
  Weight: 86 kg

DRUGS (11)
  1. SYNTHROID [Suspect]
     Active Substance: LEVOTHYROXINE SODIUM
     Indication: Hypothyroidism
     Dosage: FORM STRENGTH: 50 MICROGRAM, START DATE TEXT: DEC 2022 OR JAN 2023
     Route: 048
     Dates: start: 2023, end: 20230606
  2. ESCITALOPRAM [Concomitant]
     Active Substance: ESCITALOPRAM OXALATE
     Indication: Anxiety
     Dosage: START DATE TEXT: APPROXIMATELY 15-20 YEARS AGO
     Route: 048
  3. LEVOTHYROXINE [Suspect]
     Active Substance: LEVOTHYROXINE
     Indication: Hypothyroidism
     Dosage: FORM STRENGTH 50 MICROGRAM
     Route: 048
     Dates: start: 20231005
  4. LEVOTHYROXINE [Suspect]
     Active Substance: LEVOTHYROXINE
     Indication: Hypothyroidism
     Dosage: STOP DATE TEXT: DEC 2022 OR JAN 2023, FORM STRENGTH: 50 MICROGRAM
     Route: 048
  5. CLOBETASOL [Concomitant]
     Active Substance: CLOBETASOL
     Indication: Product used for unknown indication
     Dosage: 0.05 % TOPICAL - FOAM
     Route: 065
  6. TRIAMCINOLONE ACETONIDE [Concomitant]
     Active Substance: TRIAMCINOLONE ACETONIDE
     Indication: Product used for unknown indication
     Dosage: 0.1 % TOPICAL
     Route: 065
  7. XANAX [Concomitant]
     Active Substance: ALPRAZOLAM
     Indication: Product used for unknown indication
     Dosage: TIME INTERVAL: AS NECESSARY: HALF A TABLET DAILY AS NEEDED
     Route: 048
  8. Vitamin D3 Ol [Concomitant]
     Indication: Product used for unknown indication
     Dosage: 10,000 UNIT/GRAM
     Route: 048
  9. VITAMIN B12 [Concomitant]
     Active Substance: CYANOCOBALAMIN
     Indication: Product used for unknown indication
     Dosage: TIME INTERVAL: TOTAL: 100 MCG TOTAL
     Route: 048
  10. ALPRAZOLAMS [Concomitant]
     Indication: Anxiety
     Dosage: START DATE TEXT: A FEW YEARS AGO?FREQUENCY TEXT: TOOK TWO DOSES IN PAST YEAR
     Route: 048
  11. PEPCID [Concomitant]
     Active Substance: FAMOTIDINE
     Indication: Product used for unknown indication
     Dosage: TIME INTERVAL: TOTAL
     Route: 048

REACTIONS (18)
  - Feeling of despair [Unknown]
  - Blister [Unknown]
  - Product dispensing error [Unknown]
  - Insomnia [Recovered/Resolved]
  - Pain [Unknown]
  - Post inflammatory pigmentation change [Not Recovered/Not Resolved]
  - Scar [Not Recovered/Not Resolved]
  - Diarrhoea [Not Recovered/Not Resolved]
  - Arthralgia [Unknown]
  - Lichen planus [Recovering/Resolving]
  - Weight increased [Unknown]
  - Skin hypertrophy [Not Recovered/Not Resolved]
  - Suicidal ideation [Unknown]
  - Drug hypersensitivity [Recovering/Resolving]
  - Nightmare [Unknown]
  - Skin burning sensation [Recovered/Resolved]
  - Paraesthesia [Recovering/Resolving]
  - Skin lesion [Not Recovered/Not Resolved]

NARRATIVE: CASE EVENT DATE: 20230101
